FAERS Safety Report 7693628-7 (Version None)
Quarter: 2011Q3

REPORT INFORMATION
  Report Type: 
  Country: None (occurrence: None)
  Receive Date: 20110819
  Receipt Date: 20110818
  Transmission Date: 20111222
  Serious: Yes (Hospitalization, Other)
  Sender: FDA-Public Use
  Company Number: BR-ROCHE-756758

PATIENT
  Sex: Female
  Weight: 77 kg

DRUGS (8)
  1. ADALIMUMAB [Suspect]
     Indication: RHEUMATOID ARTHRITIS
     Route: 065
  2. ACTEMRA [Suspect]
     Indication: RHEUMATOID ARTHRITIS
     Dosage: FORM: INFUSION, LAST DOSE PRIOR TO SAE: 20 DECEMBER 2010.
     Route: 065
     Dates: start: 20100917, end: 20110101
  3. MABTHERA [Suspect]
     Indication: RHEUMATOID ARTHRITIS
     Route: 065
  4. METICORTEN [Concomitant]
  5. PANTOPRAZOLE [Concomitant]
  6. ACTEMRA [Suspect]
     Route: 065
  7. METHOTREXATE [Concomitant]
  8. INFLIXIMAB [Suspect]
     Indication: RHEUMATOID ARTHRITIS
     Route: 065

REACTIONS (8)
  - DRUG INEFFECTIVE [None]
  - FEELING OF DESPAIR [None]
  - DEPRESSION [None]
  - RHEUMATOID ARTHRITIS [None]
  - HYPERSENSITIVITY [None]
  - ONYCHOMADESIS [None]
  - NAIL INFECTION [None]
  - DYSPNOEA [None]
